FAERS Safety Report 7208568-7 (Version None)
Quarter: 2011Q1

REPORT INFORMATION
  Report Type: 
  Country: None (occurrence: None)
  Receive Date: 20110104
  Receipt Date: 20101229
  Transmission Date: 20110831
  Serious: No
  Sender: FDA-Public Use
  Company Number: US-TEVA-261665USA

PATIENT
  Sex: Female
  Weight: 59.02 kg

DRUGS (1)
  1. AZILECT [Suspect]
     Indication: PARKINSON'S DISEASE
     Dosage: 0.5 MG OD START 13-DEC-2010, INC. 1 MG OD 26-DEC-2010
     Route: 048
     Dates: start: 20101213

REACTIONS (1)
  - PALPITATIONS [None]
